FAERS Safety Report 15116847 (Version 1)
Quarter: 2018Q3

REPORT INFORMATION
  Report Type: Spontaneous
  Country: GB (occurrence: GB)
  Receive Date: 20180706
  Receipt Date: 20180706
  Transmission Date: 20181010
  Serious: Yes (Other)
  Sender: FDA-Public Use
  Company Number: GB-BAUSCH-BL-2018-018333

PATIENT
  Age: 50 Year
  Sex: Female

DRUGS (1)
  1. PYRIDOSTIGMINE [Suspect]
     Active Substance: PYRIDOSTIGMINE
     Indication: PRODUCT USED FOR UNKNOWN INDICATION
     Route: 048

REACTIONS (10)
  - Sarcoidosis [Unknown]
  - Malabsorption [Unknown]
  - Tachycardia [Unknown]
  - Myasthenia gravis [Unknown]
  - Hypothyroidism [Unknown]
  - Obesity [Unknown]
  - Hypotension [Unknown]
  - Condition aggravated [Unknown]
  - Type 2 diabetes mellitus [Unknown]
  - Asthenia [Unknown]
